FAERS Safety Report 9701477 (Version 1)
Quarter: 2013Q4

REPORT INFORMATION
  Report Type: Spontaneous
  Country: US (occurrence: None)
  Receive Date: 20131120
  Receipt Date: 20131120
  Transmission Date: 20140711
  Serious: Yes (Other)
  Sender: FDA-Public Use
  Company Number: None

PATIENT
  Age: 53 Year
  Sex: Female
  Weight: 60.33 kg

DRUGS (2)
  1. ESTRING [Suspect]
     Indication: VULVOVAGINAL DRYNESS
     Dosage: 1 RING AS NEEDED VAGINAL
     Dates: start: 20130830, end: 20131119
  2. ESTRING [Suspect]
     Indication: URINARY TRACT DISORDER
     Dosage: 1 RING AS NEEDED VAGINAL
     Dates: start: 20130830, end: 20131119

REACTIONS (1)
  - No adverse event [None]
